FAERS Safety Report 9613457 (Version 1)
Quarter: 2013Q4

REPORT INFORMATION
  Report Type: Spontaneous
  Country: US (occurrence: US)
  Receive Date: 20131010
  Receipt Date: 20131010
  Transmission Date: 20140711
  Serious: Yes (Other)
  Sender: FDA-Public Use
  Company Number: US-PFIZER INC-2013289513

PATIENT
  Sex: 0

DRUGS (1)
  1. LYRICA [Suspect]
     Indication: SCIATICA
     Dosage: 150 MG, 2X/DAY (1 CAPSULE 2 TIMES A DAY)

REACTIONS (1)
  - Loss of consciousness [Unknown]
